FAERS Safety Report 6745769-6 (Version None)
Quarter: 2010Q2

REPORT INFORMATION
  Report Type: 
  Country: None (occurrence: None)
  Receive Date: 20100528
  Receipt Date: 20100521
  Transmission Date: 20101027
  Serious: Yes (Hospitalization)
  Sender: FDA-Public Use
  Company Number: PHHO2005US00568

PATIENT
  Sex: Male

DRUGS (7)
  1. CERTICAN [Suspect]
     Indication: RENAL TRANSPLANT
     Dosage: 3 MG, QD
     Route: 048
     Dates: start: 20040802
  2. NEORAL [Concomitant]
  3. ATENOLOL [Concomitant]
     Dosage: 100 MG, QD
  4. ALLOPURINOL [Concomitant]
     Dosage: 200 MG, QD
  5. LASIX [Concomitant]
     Dosage: 60 MG, BID
  6. ALDACTONE [Concomitant]
     Dosage: 25 MG, BID
  7. HUMALOG [Concomitant]

REACTIONS (9)
  - BLOOD GLUCOSE INCREASED [None]
  - DISEASE PROGRESSION [None]
  - GROIN INFECTION [None]
  - HYPERKALAEMIA [None]
  - HYPONATRAEMIA [None]
  - INCISIONAL DRAINAGE [None]
  - STAPHYLOCOCCAL BACTERAEMIA [None]
  - STAPHYLOCOCCAL INFECTION [None]
  - TROPONIN T INCREASED [None]
